FAERS Safety Report 25774443 (Version 1)
Quarter: 2025Q3

REPORT INFORMATION
  Report Type: Report from Study
  Country: US (occurrence: US)
  Receive Date: 20250908
  Receipt Date: 20250908
  Transmission Date: 20251020
  Serious: Yes (Other)
  Sender: OTSUKA
  Company Number: US-MMM-Otsuka-4SKQ6C1L

PATIENT
  Age: 47 Year
  Sex: Female
  Weight: 54.8 kg

DRUGS (15)
  1. TOLVAPTAN [Suspect]
     Active Substance: TOLVAPTAN
     Indication: Congenital cystic kidney disease
     Dosage: 30 MG, QD (EVERY MORNING)
     Route: 048
     Dates: start: 20210806, end: 202506
  2. TOLVAPTAN [Suspect]
     Active Substance: TOLVAPTAN
     Dosage: 15 MG, QD (EVERY AFTERNOON)
     Route: 048
     Dates: start: 20210806, end: 202506
  3. TOLVAPTAN [Suspect]
     Active Substance: TOLVAPTAN
     Route: 065
  4. AMLODIPINE [Concomitant]
     Active Substance: AMLODIPINE BESYLATE
     Indication: Product used for unknown indication
     Route: 065
  5. FLUOXETINE [Concomitant]
     Active Substance: FLUOXETINE HYDROCHLORIDE
     Indication: Product used for unknown indication
     Route: 065
  6. LORAZEPAM [Concomitant]
     Active Substance: LORAZEPAM
     Indication: Product used for unknown indication
     Route: 065
  7. ONDANSETRON [Concomitant]
     Active Substance: ONDANSETRON
     Indication: Product used for unknown indication
     Route: 065
  8. OXYCODONE AND ACETAMINOPHEN [Concomitant]
     Active Substance: ACETAMINOPHEN\OXYCODONE HYDROCHLORIDE
     Indication: Product used for unknown indication
     Route: 065
  9. VALTREX [Concomitant]
     Active Substance: VALACYCLOVIR HYDROCHLORIDE
     Indication: Product used for unknown indication
     Dosage: 500 MG, QD (ONE TIME EACH DAY)
     Route: 048
  10. COZAAR [Concomitant]
     Active Substance: LOSARTAN POTASSIUM
     Indication: Hypertension
     Dosage: 1 DF, QD (25 MG TABLET EVERY MORNING)
     Route: 065
     Dates: start: 20250304
  11. COZAAR [Concomitant]
     Active Substance: LOSARTAN POTASSIUM
     Dosage: 0.5 DF, QD (25 MG HALF TABLET EVERY EVENING)
     Route: 065
     Dates: start: 20250304
  12. HYDRALAZINE [Concomitant]
     Active Substance: HYDRALAZINE HYDROCHLORIDE
     Indication: Hypertension
     Route: 048
     Dates: start: 20240822
  13. VITAMIN B COMPLEX [Concomitant]
     Active Substance: CYANOCOBALAMIN\DEXPANTHENOL\NIACINAMIDE\PYRIDOXINE HYDROCHLORIDE\RIBOFLAVIN 5^-PHOSPHATE SODIUM\THIA
     Indication: Product used for unknown indication
     Dosage: 1 DF, DAILY
     Route: 048
  14. PROZAC [Concomitant]
     Active Substance: FLUOXETINE HYDROCHLORIDE
     Indication: Product used for unknown indication
     Dosage: 20 MG, DAILY
     Route: 048
     Dates: start: 20210518
  15. TRANSDERM SCOP [Concomitant]
     Active Substance: SCOPOLAMINE
     Indication: Product used for unknown indication
     Route: 061
     Dates: start: 20240822

REACTIONS (12)
  - Hysterectomy [Unknown]
  - Therapeutic nerve ablation [Unknown]
  - Hypophosphataemia [Not Recovered/Not Resolved]
  - Blood alkaline phosphatase abnormal [Recovered/Resolved]
  - Rash maculo-papular [Unknown]
  - Weight decreased [Unknown]
  - Dry skin [Unknown]
  - Pruritus [Unknown]
  - Fatigue [Unknown]
  - Thirst [Unknown]
  - Product dose omission issue [Unknown]
  - Underdose [Unknown]

NARRATIVE: CASE EVENT DATE: 20210806
